FAERS Safety Report 16639422 (Version 3)
Quarter: 2019Q3

REPORT INFORMATION
  Report Type: Spontaneous
  Country: US (occurrence: US)
  Receive Date: 20190726
  Receipt Date: 20190821
  Transmission Date: 20191004
  Serious: Yes (Life-Threatening, Hospitalization, Other)
  Sender: FDA-Public Use
  Company Number: US-ALLERGAN-1930048US

PATIENT
  Sex: Female

DRUGS (5)
  1. MONTELUKAST [Concomitant]
     Active Substance: MONTELUKAST SODIUM
     Dosage: UNK
  2. UNSPECIFIED CHOLESTEROL PILL [Concomitant]
     Indication: BLOOD CHOLESTEROL INCREASED
     Dosage: UNK
     Route: 048
  3. UNSPECIFIED BLOOD PRESSURE PILL [Concomitant]
     Indication: HYPERTENSION
     Dosage: UNK
     Route: 048
  4. BOTOX [Suspect]
     Active Substance: ONABOTULINUMTOXINA
     Indication: TORTICOLLIS
     Dosage: 400 UNITS, SINGLE
     Dates: start: 20190123, end: 20190123
  5. OXYBUTYNIN. [Concomitant]
     Active Substance: OXYBUTYNIN CHLORIDE
     Dosage: UNK

REACTIONS (10)
  - Dyspnoea [Recovered/Resolved]
  - Impaired quality of life [Unknown]
  - Off label use [Unknown]
  - Myasthenia gravis [Not Recovered/Not Resolved]
  - Choking [Recovering/Resolving]
  - Amnesia [Recovered/Resolved]
  - Eye contusion [Recovered/Resolved]
  - Oesophageal obstruction [Not Recovered/Not Resolved]
  - Product administration error [Unknown]
  - Dysphagia [Not Recovered/Not Resolved]

NARRATIVE: CASE EVENT DATE: 201901
